FAERS Safety Report 5942740-9 (Version None)
Quarter: 2008Q4

REPORT INFORMATION
  Report Type: 
  Country: None (occurrence: None)
  Receive Date: 20081106
  Receipt Date: 20081029
  Transmission Date: 20090506
  Serious: Yes (Hospitalization)
  Sender: FDA-Public Use
  Company Number: FR-WYE-G02463108

PATIENT
  Sex: Male

DRUGS (2)
  1. TAZOCILLINE [Suspect]
     Indication: SEPSIS
     Route: 042
     Dates: start: 20080915, end: 20080918
  2. TAZOCILLINE [Suspect]
     Indication: GASTROINTESTINAL INFECTION

REACTIONS (4)
  - BRADYCARDIA [None]
  - CONFUSIONAL STATE [None]
  - DRUG LEVEL ABOVE THERAPEUTIC [None]
  - RESPIRATORY DISTRESS [None]
